FAERS Safety Report 18480498 (Version 1)
Quarter: 2020Q4

REPORT INFORMATION
  Report Type: Spontaneous
  Country: US (occurrence: US)
  Receive Date: 20201109
  Receipt Date: 20201109
  Transmission Date: 20210114
  Serious: No
  Sender: FDA-Public Use
  Company Number: None

PATIENT
  Sex: Female
  Weight: 53.8 kg

DRUGS (1)
  1. DAPSONE. [Suspect]
     Active Substance: DAPSONE

REACTIONS (2)
  - Methaemoglobinaemia [None]
  - Hypoxia [None]
